FAERS Safety Report 21137087 (Version 1)
Quarter: 2022Q3

REPORT INFORMATION
  Report Type: Spontaneous
  Country: AT (occurrence: AT)
  Receive Date: 20220727
  Receipt Date: 20220727
  Transmission Date: 20221026
  Serious: Yes (Other)
  Sender: FDA-Public Use
  Company Number: AT-002147023-NVSC2022AT158381

PATIENT
  Age: 69 Year
  Sex: Female

DRUGS (3)
  1. VALGANCICLOVIR [Suspect]
     Active Substance: VALGANCICLOVIR
     Indication: Cytomegalovirus infection
     Dosage: UNK
     Route: 065
  2. AZATHIOPRINE [Suspect]
     Active Substance: AZATHIOPRINE
     Indication: Immunosuppression
     Dosage: UNK
     Route: 065
     Dates: start: 202204
  3. CORTISONE [Suspect]
     Active Substance: CORTISONE
     Indication: Immunosuppression
     Dosage: UNK
     Route: 065
     Dates: start: 202204

REACTIONS (5)
  - Thrombocytopenia [Unknown]
  - COVID-19 [Unknown]
  - Pneumonia [Unknown]
  - Cytomegalovirus infection reactivation [Unknown]
  - Skin haemorrhage [Unknown]
